FAERS Safety Report 7911890-X (Version None)
Quarter: 2011Q4

REPORT INFORMATION
  Report Type: 
  Country: None (occurrence: None)
  Receive Date: 20111101
  Receipt Date: 20101202
  Transmission Date: 20120403
  Serious: Yes (Hospitalization, Disabling, Other)
  Sender: FDA-Public Use
  Company Number: 258454USA

PATIENT
  Sex: Female

DRUGS (1)
  1. CARBAMAZEPINE [Suspect]
     Indication: MOOD ALTERED

REACTIONS (19)
  - SKIN LESION [None]
  - SKIN EXFOLIATION [None]
  - SWELLING [None]
  - BLINDNESS [None]
  - VISUAL IMPAIRMENT [None]
  - PIGMENTATION DISORDER [None]
  - MULTI-ORGAN DISORDER [None]
  - HYPERSENSITIVITY [None]
  - MUCOUS MEMBRANE DISORDER [None]
  - PRURITUS [None]
  - URTICARIA [None]
  - RASH [None]
  - SKIN DISCOLOURATION [None]
  - ALOPECIA [None]
  - THERMAL BURN [None]
  - SCAR [None]
  - STEVENS-JOHNSON SYNDROME [None]
  - TOXIC EPIDERMAL NECROLYSIS [None]
  - NAIL DISORDER [None]
